FAERS Safety Report 12948952 (Version 1)
Quarter: 2016Q4

REPORT INFORMATION
  Report Type: Spontaneous
  Country: CA (occurrence: CA)
  Receive Date: 20161117
  Receipt Date: 20161117
  Transmission Date: 20170207
  Serious: Yes (Other)
  Sender: FDA-Public Use
  Company Number: CA-SHIRE-CA201616939

PATIENT
  Age: 52 Year
  Sex: Male

DRUGS (1)
  1. MEZAVANT [Suspect]
     Active Substance: MESALAMINE
     Indication: PRODUCT USED FOR UNKNOWN INDICATION
     Dosage: 4.8 MG, UNKNOWN
     Route: 048

REACTIONS (2)
  - Jaundice [Recovering/Resolving]
  - Autoimmune pancreatitis [Recovering/Resolving]
